FAERS Safety Report 21006372 (Version 2)
Quarter: 2022Q2

REPORT INFORMATION
  Report Type: Spontaneous
  Country: US (occurrence: US)
  Receive Date: 20220624
  Receipt Date: 20220624
  Transmission Date: 20220720
  Serious: No
  Sender: FDA-Public Use
  Company Number: US-Amarin Pharma, Inc.-2022AMR000139

PATIENT
  Sex: Female

DRUGS (1)
  1. VASCEPA [Suspect]
     Active Substance: ICOSAPENT ETHYL
     Indication: Hypercholesterolaemia
     Dates: start: 2021, end: 2022

REACTIONS (9)
  - Peripheral swelling [Unknown]
  - Synovial cyst [Unknown]
  - Pain in extremity [Unknown]
  - Infection [Unknown]
  - Gout [Unknown]
  - Skin irritation [Unknown]
  - Insomnia [Unknown]
  - Gait disturbance [Unknown]
  - Intentional underdose [Recovered/Resolved]

NARRATIVE: CASE EVENT DATE: 20210101
